FAERS Safety Report 23157133 (Version 1)
Quarter: 2023Q4

REPORT INFORMATION
  Report Type: Spontaneous
  Country: CA (occurrence: CA)
  Receive Date: 20231108
  Receipt Date: 20231108
  Transmission Date: 20240109
  Serious: Yes (Other)
  Sender: FDA-Public Use
  Company Number: CA-GLAXOSMITHKLINE-CA2023151669

PATIENT

DRUGS (4)
  1. FLUTICASONE FUROATE [Suspect]
     Active Substance: FLUTICASONE FUROATE
     Indication: Nasal cyst
     Dosage: UNK
  2. OTRIVIN [Concomitant]
     Active Substance: XYLOMETAZOLINE
     Indication: Nasal cyst
     Dosage: UNK
  3. ASPIRIN [Concomitant]
     Active Substance: ASPIRIN
     Indication: Product used for unknown indication
     Dosage: UNK
  4. CHOLESTEROL [Concomitant]
     Active Substance: CHOLESTEROL
     Indication: Product used for unknown indication
     Dosage: UNK

REACTIONS (11)
  - Cerebrovascular accident [Recovered/Resolved with Sequelae]
  - Pneumonia [Unknown]
  - Brain injury [Unknown]
  - Rhinorrhoea [Unknown]
  - Gastrooesophageal reflux disease [Unknown]
  - Gingival injury [Unknown]
  - Bronchitis [Unknown]
  - Feeding disorder [Unknown]
  - Weight decreased [Unknown]
  - Product use in unapproved indication [Unknown]
  - Therapeutic product effective for unapproved indication [Unknown]
